FAERS Safety Report 6027483-8 (Version None)
Quarter: 2009Q1

REPORT INFORMATION
  Report Type: 
  Country: None (occurrence: None)
  Receive Date: 20090105
  Receipt Date: 20081222
  Transmission Date: 20090719
  Serious: Yes (Hospitalization)
  Sender: FDA-Public Use
  Company Number: US-ELI_LILLY_AND_COMPANY-US200811003700

PATIENT
  Sex: Male

DRUGS (5)
  1. CYMBALTA [Suspect]
     Indication: POST HERPETIC NEURALGIA
     Dosage: 30 MG, 2/D
     Dates: start: 20080601, end: 20081101
  2. ASPIRIN [Concomitant]
  3. ZETIA [Concomitant]
     Indication: BLOOD CHOLESTEROL INCREASED
  4. RANITIDINE [Concomitant]
     Indication: GASTROOESOPHAGEAL REFLUX DISEASE
  5. TOPROL-XL [Concomitant]

REACTIONS (2)
  - ANXIETY [None]
  - GASTRIC CANCER [None]
